FAERS Safety Report 21927402 (Version 1)
Quarter: 2023Q1

REPORT INFORMATION
  Report Type: Spontaneous
  Country: US (occurrence: US)
  Receive Date: 20230130
  Receipt Date: 20230130
  Transmission Date: 20230418
  Serious: No
  Sender: FDA-Public Use
  Company Number: US-ELI_LILLY_AND_COMPANY-US202301010364

PATIENT
  Sex: Female

DRUGS (2)
  1. TRULICITY [Suspect]
     Active Substance: DULAGLUTIDE
     Indication: Product used for unknown indication
     Dosage: 0.75 MG, UNKNOWN
     Route: 065
  2. PEPTO BISMOL [BISMUTH SUBSALICYLATE;CALCIUM C [Concomitant]
     Indication: Dyspepsia

REACTIONS (5)
  - Dizziness [Unknown]
  - Panic disorder [Unknown]
  - Hypersomnia [Unknown]
  - Balance disorder [Unknown]
  - Impatience [Unknown]
